FAERS Safety Report 4589037-X (Version None)
Quarter: 2005Q1

REPORT INFORMATION
  Report Type: 
  Country: None (occurrence: None)
  Receive Date: 20050125
  Receipt Date: 20041207
  Transmission Date: 20050727
  Serious: No
  Sender: FDA-Public Use
  Company Number: USA041081157

PATIENT
  Age: 74 Year
  Sex: Female
  Weight: 91 kg

DRUGS (4)
  1. FORTEO [Suspect]
     Indication: OSTEOPOROSIS
     Dosage: 20 UG/1 DAY
     Dates: start: 20040201
  2. LEVOXYL [Concomitant]
  3. ATENOLOL [Concomitant]
  4. AVALIDE [Concomitant]

REACTIONS (3)
  - DYSKINESIA [None]
  - HYPOTHYROIDISM [None]
  - PAIN IN EXTREMITY [None]
